FAERS Safety Report 8458796 (Version 4)
Quarter: 2013Q1

REPORT INFORMATION
  Report Type: Spontaneous
  Country: US (occurrence: US)
  Receive Date: 20120314
  Receipt Date: 20130219
  Transmission Date: 20140127
  Serious: Yes (Other)
  Sender: FDA-Public Use
  Company Number: US-PFIZER INC-2012061853

PATIENT
  Age: 59 Year
  Sex: Female

DRUGS (9)
  1. PRISTIQ [Suspect]
     Dosage: 50 MG, 1X/DAY
     Route: 048
  2. NEXIUM [Concomitant]
     Dosage: 40 MG, UNK
  3. PRAVASTATIN SODIUM [Concomitant]
     Dosage: 40 MG, UNK
  4. HYDROCHLOROTHIAZIDE [Concomitant]
     Dosage: 25 MG, UNK
  5. PREDNISONE [Concomitant]
     Dosage: 5 MG, UNK
  6. CEPHALEXIN [Concomitant]
     Dosage: 500 MG, UNK
  7. TYLENOL [Concomitant]
     Indication: ARTHRALGIA
     Dosage: 650 MG, UNK
  8. LISINOPRIL [Concomitant]
     Dosage: 10 MG, UNK
  9. CYCLOBENZAPRINE HYDROCHLORIDE [Concomitant]
     Dosage: 10 MG, UNK

REACTIONS (8)
  - Hyperlipidaemia [Unknown]
  - Essential hypertension [Unknown]
  - Intervertebral disc degeneration [Unknown]
  - Depression [Unknown]
  - Insomnia [Unknown]
  - Gastrooesophageal reflux disease [Unknown]
  - Endocrine disorder [Unknown]
  - Impaired fasting glucose [Unknown]
